FAERS Safety Report 21885675 (Version 1)
Quarter: 2023Q1

REPORT INFORMATION
  Report Type: Spontaneous
  Country: IT (occurrence: IT)
  Receive Date: 20230119
  Receipt Date: 20230119
  Transmission Date: 20230418
  Serious: No
  Sender: FDA-Public Use
  Company Number: IT-PFIZER INC-PV202300011047

PATIENT
  Age: 45 Year
  Sex: Male

DRUGS (1)
  1. PAXLOVID [Suspect]
     Active Substance: NIRMATRELVIR\RITONAVIR
     Dosage: 6 DF, 2X/DAY (6 TABLETS BOTH IN THE MORNING AND IN THE EVENING ON THE FIRST DAY OF TREATMENT)
     Dates: start: 20230112

REACTIONS (1)
  - Accidental overdose [Unknown]

NARRATIVE: CASE EVENT DATE: 20230112
